FAERS Safety Report 22005050 (Version 5)
Quarter: 2023Q2

REPORT INFORMATION
  Report Type: Report from Study
  Country: RU (occurrence: RU)
  Receive Date: 20230217
  Receipt Date: 20230501
  Transmission Date: 20230722
  Serious: Yes (Death, Hospitalization)
  Sender: FDA-Public Use
  Company Number: RU-002147023-NVSC2022RU279492

PATIENT
  Age: 45 Year
  Sex: Female
  Weight: 73 kg

DRUGS (3)
  1. PIQRAY [Suspect]
     Active Substance: ALPELISIB
     Indication: Breast cancer
     Dosage: 300 MG, QD
     Route: 048
     Dates: start: 20221118, end: 20230104
  2. FULVESTRANT [Concomitant]
     Active Substance: FULVESTRANT
     Indication: Breast cancer metastatic
     Dosage: 500 MG, 28D (ONCE IN 28 DAYS)
     Route: 030
     Dates: start: 20221216, end: 20221216
  3. DENOSUMAB [Concomitant]
     Active Substance: DENOSUMAB
     Indication: Metastases to bone
     Dosage: 120 MG, 28D (ONCE IN 28 DAYS)
     Route: 030
     Dates: start: 20221216, end: 20221216

REACTIONS (6)
  - Malignant neoplasm progression [Fatal]
  - Pain [Not Recovered/Not Resolved]
  - Skin toxicity [Recovered/Resolved]
  - Rash [Recovered/Resolved]
  - Blood glucose increased [Unknown]
  - Pruritus [Recovered/Resolved]

NARRATIVE: CASE EVENT DATE: 20221129
